FAERS Safety Report 10226291 (Version 1)
Quarter: 2014Q2

REPORT INFORMATION
  Report Type: Spontaneous
  Country: US (occurrence: US)
  Receive Date: 20140609
  Receipt Date: 20140609
  Transmission Date: 20141212
  Serious: No
  Sender: FDA-Public Use
  Company Number: US-009507513-1406USA001002

PATIENT
  Sex: Female

DRUGS (1)
  1. NEXPLANON [Suspect]
     Indication: CONTRACEPTION
     Dosage: 68MG IMPLANT ONCE EVERY 3 YEARS
     Route: 059
     Dates: start: 201310

REACTIONS (2)
  - Menstruation irregular [Not Recovered/Not Resolved]
  - Device kink [Not Recovered/Not Resolved]
